FAERS Safety Report 14549181 (Version 1)
Quarter: 2018Q1

REPORT INFORMATION
  Report Type: Spontaneous
  Country: US (occurrence: US)
  Receive Date: 20180219
  Receipt Date: 20180219
  Transmission Date: 20180509
  Serious: No
  Sender: FDA-Public Use
  Company Number: US-IPSEN BIOPHARMACEUTICALS, INC.-2017-04252

PATIENT
  Age: 47 Year
  Sex: Female

DRUGS (1)
  1. DYSPORT [Suspect]
     Active Substance: ABOBOTULINUMTOXINA
     Indication: SKIN WRINKLING
     Dosage: 50 IU
     Route: 065
     Dates: start: 20170420, end: 20170420

REACTIONS (5)
  - Muscular weakness [Recovering/Resolving]
  - Injection site pain [Unknown]
  - Accidental overdose [Unknown]
  - Facial paralysis [Recovering/Resolving]
  - Eyelid ptosis [Recovered/Resolved]

NARRATIVE: CASE EVENT DATE: 20170420
